FAERS Safety Report 7944669-3 (Version None)
Quarter: 2011Q4

REPORT INFORMATION
  Report Type: 
  Country: None (occurrence: None)
  Receive Date: 20111122
  Receipt Date: 20110824
  Transmission Date: 20120403
  Serious: No
  Sender: FDA-Public Use
  Company Number: PHHY2011US63205

PATIENT
  Age: 50 Year
  Sex: Female
  Weight: 70.7 kg

DRUGS (10)
  1. SERTRALINE HYDROCHLORIDE [Concomitant]
  2. DICLOFENAC SODIUM [Concomitant]
  3. WELLBUTRIN [Concomitant]
  4. LEVOTHYROXINE SODIUM [Concomitant]
  5. SIMVASTATIN [Concomitant]
  6. OXYCODONE HCL [Concomitant]
  7. GILENYA [Suspect]
     Indication: RELAPSING-REMITTING MULTIPLE SCLEROSIS
     Dosage: 0.5 MG, QD, ORAL
     Route: 048
     Dates: start: 20110324
  8. MENEST [Concomitant]
  9. TRAZODONE HCL [Concomitant]
  10. BACLOFEN [Concomitant]

REACTIONS (2)
  - BALANCE DISORDER [None]
  - MEMORY IMPAIRMENT [None]
